FAERS Safety Report 6991969-X (Version None)
Quarter: 2010Q3

REPORT INFORMATION
  Report Type: 
  Country: None (occurrence: None)
  Receive Date: 20100917
  Receipt Date: 20100908
  Transmission Date: 20110219
  Serious: Yes (Hospitalization)
  Sender: FDA-Public Use
  Company Number: US-US-EMD SERONO, INC.-7017237

PATIENT
  Sex: Male
  Weight: 92 kg

DRUGS (2)
  1. REBIF [Suspect]
     Indication: MULTIPLE SCLEROSIS
     Route: 058
     Dates: start: 20100526
  2. NEXIUM [Concomitant]
     Indication: DYSPEPSIA

REACTIONS (1)
  - CHOLELITHIASIS [None]
